FAERS Safety Report 20799626 (Version 3)
Quarter: 2022Q2

REPORT INFORMATION
  Report Type: Spontaneous
  Country: IT (occurrence: IT)
  Receive Date: 20220509
  Receipt Date: 20220604
  Transmission Date: 20220720
  Serious: Yes (Hospitalization, Other)
  Sender: FDA-Public Use
  Company Number: IT-MLMSERVICE-20220421-3515407-1

PATIENT
  Age: 75 Year
  Sex: Female

DRUGS (6)
  1. IBANDRONIC ACID [Suspect]
     Active Substance: IBANDRONIC ACID
     Indication: Osteoporosis
     Dosage: 35 MILLIGRAM, EVERY WEEK
     Route: 065
     Dates: end: 2017
  2. DENOSUMAB [Suspect]
     Active Substance: DENOSUMAB
     Indication: Osteoporosis
     Dosage: ONE INJECTION EVERY SIX MONTHS60 MILLIGRAM ()
     Route: 058
     Dates: start: 2017, end: 202001
  3. RISEDRONIC ACID [Suspect]
     Active Substance: RISEDRONIC ACID
     Indication: Osteoporosis
     Dosage: UNK (35 GTT/W)
     Route: 065
  4. ALPRAZOLAM [Concomitant]
     Active Substance: ALPRAZOLAM
     Indication: Depression
     Dosage: UNK
     Route: 065
  5. CHOLECALCIFEROL [Concomitant]
     Active Substance: CHOLECALCIFEROL
     Indication: Supplementation therapy
     Dosage: 25000 INTERNATIONAL UNIT (SUPPLEMENTATION FOR ANOTHER YEAR)
     Route: 065
  6. CHOLECALCIFEROL [Concomitant]
     Active Substance: CHOLECALCIFEROL
     Dosage: UNK (SUPPLEMENTATION FOR ANOTHER YEAR)
     Route: 065

REACTIONS (1)
  - Atypical femur fracture [Unknown]

NARRATIVE: CASE EVENT DATE: 20160101
